FAERS Safety Report 6654210-3 (Version None)
Quarter: 2010Q1

REPORT INFORMATION
  Report Type: 
  Country: None (occurrence: None)
  Receive Date: 20100326
  Receipt Date: 20100316
  Transmission Date: 20100710
  Serious: Yes (Other)
  Sender: FDA-Public Use
  Company Number: US-JNJCH-2010006974

PATIENT
  Age: 16 Year
  Sex: Male

DRUGS (7)
  1. DIPHENHYDRAMINE HYDROCHLORIDE [Suspect]
     Indication: DRUG USE FOR UNKNOWN INDICATION
     Dosage: TEXT:UNKNOWN
     Route: 065
  2. DIGOXIN [Concomitant]
     Indication: CARDIAC DISORDER
     Dosage: TEXT:250 MG 1/DAY
     Route: 065
  3. AMIODARONE HCL [Concomitant]
     Indication: CARDIAC DISORDER
     Dosage: TEXT:200 MG  1/DAY
     Route: 065
  4. WARFARIN SODIUM [Concomitant]
     Indication: CARDIOVASCULAR EVENT PROPHYLAXIS
     Dosage: TEXT:1 MG  1/DAY
     Route: 065
  5. SERTRALINE HCL [Concomitant]
     Indication: DEPRESSION
     Dosage: TEXT:100 MG  1/DAY
     Route: 065
  6. POTASSIUM [Concomitant]
     Indication: VITAMIN SUPPLEMENTATION
     Dosage: TEXT:20 MEG  1/DAY
     Route: 065
  7. MULTI-VITAMINS [Concomitant]
     Indication: VITAMIN SUPPLEMENTATION
     Dosage: TEXT: 1/DAY
     Route: 065

REACTIONS (2)
  - DRUG HYPERSENSITIVITY [None]
  - ILL-DEFINED DISORDER [None]
